FAERS Safety Report 10132090 (Version 2)
Quarter: 2014Q2

REPORT INFORMATION
  Report Type: Spontaneous
  Country: US (occurrence: US)
  Receive Date: 20140428
  Receipt Date: 20140627
  Transmission Date: 20141212
  Serious: Yes (Other)
  Sender: FDA-Public Use
  Company Number: US-PFIZER INC-2014116556

PATIENT
  Age: 53 Year
  Sex: Female
  Weight: 47.62 kg

DRUGS (4)
  1. GEODON [Suspect]
     Dosage: UNK
     Dates: end: 2005
  2. CLONAZEPAM [Concomitant]
     Dosage: UNK
  3. REMERON [Concomitant]
     Dosage: UNK
  4. SEROQUEL [Concomitant]
     Dosage: UNK

REACTIONS (3)
  - Dementia Alzheimer^s type [Unknown]
  - Nerve compression [Unknown]
  - Feeling abnormal [Unknown]
